FAERS Safety Report 20719890 (Version 2)
Quarter: 2022Q2

REPORT INFORMATION
  Report Type: Spontaneous
  Country: US (occurrence: US)
  Receive Date: 20220418
  Receipt Date: 20220526
  Transmission Date: 20220721
  Serious: No
  Sender: FDA-Public Use
  Company Number: US-PFIZER INC-202200452813

PATIENT
  Age: 2 Year
  Sex: Male
  Weight: 10.8 kg

DRUGS (10)
  1. GENOTROPIN [Suspect]
     Active Substance: SOMATROPIN
     Indication: Growth hormone deficiency
     Dosage: 0.5 MG, 1X/DAY
     Dates: start: 20220309
  2. GENOTROPIN [Suspect]
     Active Substance: SOMATROPIN
     Dosage: UNK
  3. CALCITRIOL [Concomitant]
     Active Substance: CALCITRIOL
     Dosage: 0.25 ML
  4. VICTRA [Concomitant]
     Dosage: 6 ML, 2X/DAY
  5. FERROUS SULFATE [Concomitant]
     Active Substance: FERROUS SULFATE
     Dosage: UNK, 2X/DAY (2.5 TWICE A DAY)
  6. AMLODIPINE [Concomitant]
     Active Substance: AMLODIPINE BESYLATE
     Dosage: 2.5 ML, 2X/DAY
  7. LABETALOL [Concomitant]
     Active Substance: LABETALOL\LABETALOL HYDROCHLORIDE
     Dosage: 1 ML, 2X/DAY
  8. EPOTIN [EPOETIN ALFA] [Concomitant]
     Dosage: 0.07 ML, WEEKLY
  9. KEXELATE [Concomitant]
     Dosage: 13 G, 1X/DAY (13 GRAMS OF POWDER ONCE A DAY MIXED INTO HIS FORMULA)
  10. SODIUM CHLORIDE [Concomitant]
     Active Substance: SODIUM CHLORIDE
     Dosage: 3 ML, 1X/DAY

REACTIONS (4)
  - Wrong technique in device usage process [Unknown]
  - Poor quality product administered [Unknown]
  - Drug dose omission by device [Unknown]
  - Device breakage [Unknown]

NARRATIVE: CASE EVENT DATE: 20220320
